FAERS Safety Report 10007177 (Version 1)
Quarter: 2014Q1

REPORT INFORMATION
  Report Type: Spontaneous
  Country: US (occurrence: None)
  Receive Date: 20140312
  Receipt Date: 20140312
  Transmission Date: 20141002
  Serious: Yes (Life-Threatening, Hospitalization)
  Sender: FDA-Public Use
  Company Number: None

PATIENT
  Age: 18 Year
  Sex: Female
  Weight: 75 kg

DRUGS (2)
  1. NUVARING [Suspect]
     Indication: DYSMENORRHOEA
     Dates: start: 20130801, end: 20140228
  2. NUVARING [Suspect]
     Indication: MENORRHAGIA
     Dates: start: 20130801, end: 20140228

REACTIONS (11)
  - Pulmonary embolism [None]
  - Poor venous access [None]
  - Troponin increased [None]
  - Cardiac ventricular disorder [None]
  - Brain natriuretic peptide increased [None]
  - Ischaemia [None]
  - Respiratory failure [None]
  - Escherichia urinary tract infection [None]
  - Epistaxis [None]
  - Disease recurrence [None]
  - Drug hypersensitivity [None]
